FAERS Safety Report 7597016-3 (Version None)
Quarter: 2011Q3

REPORT INFORMATION
  Report Type: 
  Country: None (occurrence: None)
  Receive Date: 20110708
  Receipt Date: 20110701
  Transmission Date: 20111222
  Serious: Yes (Death, Other)
  Sender: FDA-Public Use
  Company Number: DE-GENZYME-CAMP-1001727

PATIENT
  Age: 56 Year
  Sex: Male

DRUGS (7)
  1. CAMPATH [Suspect]
     Indication: MULTIPLE MYELOMA
     Dosage: 20 MG, UNK
     Route: 065
  2. FLUDARA [Suspect]
     Indication: MULTIPLE MYELOMA
     Dosage: 90 MG/M2, UNK
     Route: 065
  3. MELPHALAN HYDROCHLORIDE [Suspect]
     Indication: MULTIPLE MYELOMA
     Dosage: 140 MG/M2, UNK
     Route: 065
  4. CAMPATH [Suspect]
     Indication: BONE MARROW CONDITIONING REGIMEN
  5. FLUDARA [Suspect]
     Indication: BONE MARROW CONDITIONING REGIMEN
  6. MELPHALAN HYDROCHLORIDE [Suspect]
     Indication: BONE MARROW CONDITIONING REGIMEN
  7. PENTAMIDINE ISETHIONATE [Concomitant]
     Indication: ANTIFUNGAL PROPHYLAXIS

REACTIONS (4)
  - ACUTE GRAFT VERSUS HOST DISEASE IN SKIN [None]
  - SEPSIS [None]
  - MULTI-ORGAN FAILURE [None]
  - TOXOPLASMOSIS [None]
